FAERS Safety Report 6805128-4 (Version None)
Quarter: 2010Q2

REPORT INFORMATION
  Report Type: 
  Country: None (occurrence: None)
  Receive Date: 20100628
  Receipt Date: 20070828
  Transmission Date: 20101027
  Serious: No
  Sender: FDA-Public Use
  Company Number: US-PFIZER INC-2007071898

PATIENT
  Age: 32 Year
  Sex: Female
  Weight: 56.8 kg

DRUGS (3)
  1. GEODON [Suspect]
     Indication: DEPRESSION
     Route: 048
     Dates: start: 20070301
  2. FLUOXETINE [Interacting]
     Indication: DEPRESSION
  3. KLONOPIN [Interacting]

REACTIONS (5)
  - CHEST DISCOMFORT [None]
  - DRUG INTERACTION [None]
  - HYPERSENSITIVITY [None]
  - HYPOAESTHESIA [None]
  - PSYCHOMOTOR HYPERACTIVITY [None]
